FAERS Safety Report 19306956 (Version 7)
Quarter: 2022Q4

REPORT INFORMATION
  Report Type: Report from Study
  Country: US (occurrence: US)
  Receive Date: 20210526
  Receipt Date: 20221206
  Transmission Date: 20230112
  Serious: Yes (Hospitalization, Other)
  Sender: FDA-Public Use
  Company Number: NVSC2021US116974

PATIENT
  Age: 47 Year
  Sex: Female

DRUGS (2)
  1. KESIMPTA [Suspect]
     Active Substance: OFATUMUMAB
     Indication: Multiple sclerosis
     Dosage: 20 MG
     Route: 065
     Dates: start: 20210519
  2. KESIMPTA [Suspect]
     Active Substance: OFATUMUMAB
     Dosage: UNK
     Route: 065
     Dates: start: 20210520

REACTIONS (31)
  - Multiple sclerosis relapse [Unknown]
  - Fall [Unknown]
  - Dysphagia [Unknown]
  - Chest pain [Unknown]
  - Hypoaesthesia [Unknown]
  - Cognitive disorder [Unknown]
  - Muscle spasms [Unknown]
  - Vision blurred [Unknown]
  - Constipation [Unknown]
  - Diarrhoea [Unknown]
  - Cough [Unknown]
  - Rhinorrhoea [Unknown]
  - Chills [Unknown]
  - Contusion [Unknown]
  - Headache [Unknown]
  - Arthralgia [Unknown]
  - Back pain [Unknown]
  - Tremor [Unknown]
  - Dizziness [Unknown]
  - Gait disturbance [Recovered/Resolved]
  - Asthenia [Unknown]
  - Joint stiffness [Unknown]
  - Balance disorder [Unknown]
  - Pain [Unknown]
  - Myalgia [Unknown]
  - Temperature intolerance [Unknown]
  - Aphonia [Unknown]
  - Fibromyalgia [Unknown]
  - Sciatica [Unknown]
  - Band sensation [Unknown]
  - Inappropriate schedule of product administration [Unknown]

NARRATIVE: CASE EVENT DATE: 20210520
